FAERS Safety Report 6410949-6 (Version None)
Quarter: 2009Q4

REPORT INFORMATION
  Report Type: 
  Country: None (occurrence: None)
  Receive Date: 20091022
  Receipt Date: 20091014
  Transmission Date: 20100525
  Serious: Yes (Hospitalization)
  Sender: FDA-Public Use
  Company Number: PHHO2009FR09644

PATIENT
  Sex: Female
  Weight: 47 kg

DRUGS (3)
  1. RAD 666 RAD+TAB [Suspect]
     Indication: RENAL CELL CARCINOMA
     Dosage: 10 MG
     Route: 048
     Dates: start: 20090408, end: 20090620
  2. RAD 666 RAD+TAB [Suspect]
     Dosage: 10 MG
     Route: 048
     Dates: start: 20090630, end: 20090722
  3. AVASTIN [Suspect]
     Indication: RENAL CELL CARCINOMA
     Dosage: 10 MG
     Route: 042
     Dates: start: 20090407, end: 20090616

REACTIONS (2)
  - ANAEMIA [None]
  - HYPONATRAEMIA [None]
